FAERS Safety Report 17886440 (Version 3)
Quarter: 2020Q4

REPORT INFORMATION
  Report Type: Report from Study
  Country: JP (occurrence: JP)
  Receive Date: 20200611
  Receipt Date: 20201012
  Transmission Date: 20210113
  Serious: Yes (Hospitalization)
  Sender: FDA-Public Use
  Company Number: JP-EISAI MEDICAL RESEARCH-EC-2020-073279

PATIENT
  Age: 71 Year
  Sex: Male
  Weight: 95 kg

DRUGS (10)
  1. LENVATINIB [Suspect]
     Active Substance: LENVATINIB
     Route: 048
     Dates: start: 20200601
  2. CISPLATIN. [Suspect]
     Active Substance: CISPLATIN
     Indication: HEPATOCELLULAR CARCINOMA
     Route: 013
     Dates: start: 20191105, end: 20200526
  3. LIVACT [Concomitant]
     Active Substance: AMINO ACIDS, SOURCE UNSPECIFIED
     Route: 048
  4. NIFEDIPINE CR [Concomitant]
     Active Substance: NIFEDIPINE
     Route: 048
  5. URSODEOXYCHOLIC ACID [Concomitant]
     Active Substance: URSODIOL
     Route: 048
  6. LACTULOSE. [Concomitant]
     Active Substance: LACTULOSE
     Route: 048
  7. SODIUM RABEPRAZOLE [Concomitant]
     Active Substance: RABEPRAZOLE SODIUM
     Route: 048
  8. LENVATINIB [Suspect]
     Active Substance: LENVATINIB
     Indication: HEPATOCELLULAR CARCINOMA
     Route: 048
     Dates: start: 20191105, end: 20191124
  9. TRAZENTA [Concomitant]
     Active Substance: LINAGLIPTIN
     Route: 048
  10. LENVATINIB [Suspect]
     Active Substance: LENVATINIB
     Route: 048
     Dates: start: 20191125, end: 202005

REACTIONS (2)
  - Meningitis bacterial [Recovered/Resolved]
  - Hepatic encephalopathy [Recovered/Resolved]

NARRATIVE: CASE EVENT DATE: 20200317
